FAERS Safety Report 9481403 (Version 2)
Quarter: 2013Q3

REPORT INFORMATION
  Report Type: Spontaneous
  Country: US (occurrence: US)
  Receive Date: 20130828
  Receipt Date: 20130828
  Transmission Date: 20140515
  Serious: Yes (Death, Hospitalization)
  Sender: FDA-Public Use
  Company Number: US-AMGEN-KDL163749

PATIENT
  Age: 71 Year
  Sex: Female

DRUGS (4)
  1. ENBREL [Suspect]
     Indication: RHEUMATOID ARTHRITIS
     Dosage: UNK UNK, UNK
     Route: 065
     Dates: start: 20021126
  2. LEFLUNOMIDE [Concomitant]
     Dosage: UNK UNK, UNK
  3. METHOTREXATE [Concomitant]
     Dosage: UNK UNK, UNK
  4. LEVOTHRYROXINE SODIUM [Concomitant]
     Dosage: UNK UNK, UNK

REACTIONS (6)
  - Death [Fatal]
  - White blood cell count decreased [Unknown]
  - Pneumonia [Unknown]
  - Malaise [Unknown]
  - Influenza [Unknown]
  - Fatigue [Unknown]
